FAERS Safety Report 8322949-X (Version None)
Quarter: 2012Q2

REPORT INFORMATION
  Report Type: 
  Country: None (occurrence: None)
  Receive Date: 20120426
  Receipt Date: 20120417
  Transmission Date: 20120825
  Serious: Yes (Other)
  Sender: FDA-Public Use
  Company Number: US-GDP-11412203

PATIENT
  Age: 72 Year
  Sex: Female

DRUGS (4)
  1. CLOBEX [Suspect]
     Indication: LICHEN PLANUS
     Dosage: 1 DF, BID, TOPICAL
     Route: 061
     Dates: start: 20111024, end: 20111029
  2. TRAVATAN [Concomitant]
  3. TRICOR [Concomitant]
  4. QUINAPRIL [Concomitant]

REACTIONS (7)
  - PRURITUS [None]
  - HAEMORRHAGE [None]
  - SCAB [None]
  - SKIN DISCOLOURATION [None]
  - SKIN HYPERTROPHY [None]
  - BLISTER [None]
  - STEVENS-JOHNSON SYNDROME [None]
